FAERS Safety Report 9425208 (Version 2)
Quarter: 2013Q3

REPORT INFORMATION
  Report Type: Spontaneous
  Country: FR (occurrence: FR)
  Receive Date: 20130729
  Receipt Date: 20130731
  Transmission Date: 20140515
  Serious: Yes (Life-Threatening)
  Sender: FDA-Public Use
  Company Number: FR-PFIZER INC-2013216471

PATIENT
  Age: 86 Year
  Sex: Female

DRUGS (5)
  1. SOLU-MEDROL [Suspect]
     Dosage: 1 DF, 1X/DAY
     Route: 042
     Dates: start: 20130417, end: 20130423
  2. SINTROM [Suspect]
     Dosage: 4 MG QUADRI-SCORED TABLET, AT 0.25 DOSAGE FORM DAILY (1 MG DAILY)
     Route: 048
     Dates: end: 20130424
  3. AROMASIN [Concomitant]
     Dosage: 25 MG, 1X/DAY
     Route: 048
  4. CLASTOBAN [Concomitant]
     Dosage: 800 MG, 2X/DAY
     Route: 048
  5. LASILIX [Concomitant]
     Dosage: 1 DF, 2X/DAY
     Route: 048

REACTIONS (1)
  - International normalised ratio increased [Recovered/Resolved]
